FAERS Safety Report 17346465 (Version 1)
Quarter: 2020Q1

REPORT INFORMATION
  Report Type: Spontaneous
  Country: US (occurrence: US)
  Receive Date: 20200129
  Receipt Date: 20200129
  Transmission Date: 20200409
  Serious: Yes (Hospitalization)
  Sender: FDA-Public Use
  Company Number: None

PATIENT
  Age: 67 Year
  Sex: Female

DRUGS (2)
  1. CARFILZOMIB [Suspect]
     Active Substance: CARFILZOMIB
     Indication: PLASMA CELL MYELOMA
     Dosage: ?          OTHER FREQUENCY:WEEKLY;?
     Route: 042
     Dates: start: 20191212, end: 20191219
  2. PREDNISONE. [Concomitant]
     Active Substance: PREDNISONE
     Dates: start: 20191212

REACTIONS (5)
  - Exfoliation syndrome [None]
  - Full blood count abnormal [None]
  - Thrombotic microangiopathy [None]
  - Urine analysis abnormal [None]
  - Dialysis [None]

NARRATIVE: CASE EVENT DATE: 20191212
